FAERS Safety Report 18329525 (Version 1)
Quarter: 2020Q3

REPORT INFORMATION
  Report Type: Spontaneous
  Country: US (occurrence: US)
  Receive Date: 20200930
  Receipt Date: 20200930
  Transmission Date: 20201103
  Serious: No
  Sender: FDA-Public Use
  Company Number: US-PFIZER INC-2020375055

PATIENT
  Age: 73 Year
  Sex: Female
  Weight: 110.22 kg

DRUGS (3)
  1. CHANTIX [Suspect]
     Active Substance: VARENICLINE TARTRATE
     Indication: SMOKING CESSATION THERAPY
     Dosage: 0.5 MG, DAILY FOR 3 DAYS
     Route: 048
     Dates: start: 20200819, end: 2020
  2. CHANTIX [Suspect]
     Active Substance: VARENICLINE TARTRATE
     Dosage: 1 MG, TWICE DAILY (1 IN THE MORNING AND 1 AT NIGHT)
     Dates: start: 2020, end: 2020
  3. CHANTIX [Suspect]
     Active Substance: VARENICLINE TARTRATE
     Dosage: 0.5 MG TWICE A DAY FOR 4 DAYS
     Dates: start: 2020, end: 2020

REACTIONS (1)
  - Weight increased [Unknown]
